FAERS Safety Report 9629628 (Version 2)
Quarter: 2013Q4

REPORT INFORMATION
  Report Type: Report from Study
  Country: US (occurrence: US)
  Receive Date: 20131017
  Receipt Date: 20131017
  Transmission Date: 20140711
  Serious: Yes (Hospitalization, Other)
  Sender: FDA-Public Use
  Company Number: US-ACTELION-A-NJ2013-88640

PATIENT
  Age: 54 Year
  Sex: Female

DRUGS (5)
  1. VELETRI [Suspect]
     Indication: PULMONARY ARTERIAL HYPERTENSION
     Dosage: 10 NG/KG, PER MIN
     Route: 042
     Dates: start: 20130322
  2. LETAIRIS [Suspect]
     Dosage: 5 MG, UNK
     Route: 048
     Dates: start: 20130308
  3. SILDENAFIL [Concomitant]
  4. LASIX [Concomitant]
  5. RITUXAN [Concomitant]

REACTIONS (4)
  - Scleroderma [Unknown]
  - Pain in extremity [Unknown]
  - Pain [Unknown]
  - Concomitant disease aggravated [Unknown]
